FAERS Safety Report 23296539 (Version 1)
Quarter: 2023Q4

REPORT INFORMATION
  Report Type: Report from Study
  Country: US (occurrence: US)
  Receive Date: 20231214
  Receipt Date: 20231214
  Transmission Date: 20240110
  Serious: Yes (Other)
  Sender: FDA-Public Use
  Company Number: US-MYLANLABS-2023M1132352

PATIENT
  Age: 7 Decade
  Sex: Female

DRUGS (20)
  1. TRIAMCINOLONE [Suspect]
     Active Substance: TRIAMCINOLONE
     Indication: Skin ulcer
     Dosage: UNK
     Route: 061
  2. TRIAMCINOLONE [Suspect]
     Active Substance: TRIAMCINOLONE
     Indication: Immune system disorder
  3. MINOCYCLINE [Suspect]
     Active Substance: MINOCYCLINE HYDROCHLORIDE
     Indication: Skin ulcer
     Dosage: 100 MILLIGRAM, BID
     Route: 065
  4. MINOCYCLINE [Suspect]
     Active Substance: MINOCYCLINE HYDROCHLORIDE
     Indication: Immune system disorder
  5. FLUCONAZOLE [Suspect]
     Active Substance: FLUCONAZOLE
     Indication: Skin ulcer
     Dosage: 150 MILLIGRAM, QD
     Route: 048
  6. FLUCONAZOLE [Suspect]
     Active Substance: FLUCONAZOLE
     Indication: Immune system disorder
  7. NYSTATIN [Suspect]
     Active Substance: NYSTATIN
     Indication: Skin ulcer
     Dosage: UNK
     Route: 061
  8. NYSTATIN [Suspect]
     Active Substance: NYSTATIN
     Indication: Immune system disorder
  9. CIPROFLOXACIN [Suspect]
     Active Substance: CIPROFLOXACIN
     Indication: Skin ulcer
     Dosage: 500 MILLIGRAM, BID
     Route: 065
  10. CIPROFLOXACIN [Suspect]
     Active Substance: CIPROFLOXACIN
     Indication: Immune system disorder
  11. GABAPENTIN [Suspect]
     Active Substance: GABAPENTIN
     Indication: Skin ulcer
     Dosage: 200 MILLIGRAM, QD, CREAM
     Route: 065
  12. GABAPENTIN [Suspect]
     Active Substance: GABAPENTIN
     Indication: Immune system disorder
  13. ACITRETIN [Suspect]
     Active Substance: ACITRETIN
     Indication: Skin ulcer
     Dosage: 10 MILLIGRAM, QD
     Route: 065
  14. ACITRETIN [Suspect]
     Active Substance: ACITRETIN
     Indication: Immune system disorder
  15. MUPIROCIN [Suspect]
     Active Substance: MUPIROCIN
     Indication: Skin ulcer
     Dosage: UNK
     Route: 065
  16. MUPIROCIN [Suspect]
     Active Substance: MUPIROCIN
     Indication: Immune system disorder
  17. GENTAMICIN [Suspect]
     Active Substance: GENTAMICIN
     Indication: Skin ulcer
     Dosage: UNK
     Route: 065
  18. GENTAMICIN [Suspect]
     Active Substance: GENTAMICIN
     Indication: Immune system disorder
  19. PENTOXIFYLLINE [Concomitant]
     Active Substance: PENTOXIFYLLINE
     Indication: Skin ulcer
     Dosage: 400 MILLIGRAM, TID; THREE TIMES A DAY
     Route: 065
  20. PENTOXIFYLLINE [Concomitant]
     Active Substance: PENTOXIFYLLINE
     Indication: Immune system disorder
     Dosage: 800 MILLIGRAM, TID; THREE TIMES A DAY
     Route: 065

REACTIONS (2)
  - Drug ineffective [Unknown]
  - Off label use [Unknown]
